FAERS Safety Report 15803466 (Version 1)
Quarter: 2019Q1

REPORT INFORMATION
  Report Type: Spontaneous
  Country: US (occurrence: US)
  Receive Date: 20190109
  Receipt Date: 20190109
  Transmission Date: 20190417
  Serious: Yes (Other)
  Sender: FDA-Public Use
  Company Number: US-GILEAD-2019-0383453

PATIENT
  Age: 54 Year
  Sex: Female

DRUGS (1)
  1. ZYDELIG [Suspect]
     Active Substance: IDELALISIB
     Indication: NEOPLASM MALIGNANT
     Route: 065

REACTIONS (1)
  - Oesophageal ulcer [Not Recovered/Not Resolved]

NARRATIVE: CASE EVENT DATE: 201811
